FAERS Safety Report 6184585-3 (Version None)
Quarter: 2009Q2

REPORT INFORMATION
  Report Type: 
  Country: None (occurrence: None)
  Receive Date: 20090508
  Receipt Date: 20090427
  Transmission Date: 20091009
  Serious: Yes (Other)
  Sender: FDA-Public Use
  Company Number: PHEH2004US01690

PATIENT
  Sex: Female

DRUGS (6)
  1. AREDIA [Suspect]
     Indication: METASTASES TO BONE
     Dosage: 90 MG,Q 4-6 WKS
     Dates: start: 19961004, end: 20040101
  2. PAMIDRONATE DISODIUM [Suspect]
     Dosage: UNK MG, Q 4 WKS
     Route: 042
     Dates: start: 20000101, end: 20040106
  3. PROCRIT [Concomitant]
  4. OXYCONTIN [Concomitant]
  5. DECADRON [Concomitant]
     Dosage: 26MG TO 4MG/WITH CHEMO
     Dates: start: 20010220
  6. TAMOXIFEN CITRATE [Concomitant]

REACTIONS (14)
  - BONE DISORDER [None]
  - BREAST CANCER METASTATIC [None]
  - JAW DISORDER [None]
  - MOUTH ULCERATION [None]
  - NEUROPATHY PERIPHERAL [None]
  - ORAL DISORDER [None]
  - ORAL PAIN [None]
  - OSTEITIS [None]
  - OSTEONECROSIS [None]
  - OSTEOPOROSIS [None]
  - PAIN IN EXTREMITY [None]
  - PAIN IN JAW [None]
  - PARAESTHESIA [None]
  - TUMOUR MARKER INCREASED [None]
